FAERS Safety Report 5036341-7 (Version None)
Quarter: 2006Q2

REPORT INFORMATION
  Report Type: 
  Country: None (occurrence: None)
  Receive Date: 20060601
  Receipt Date: 20051201
  Transmission Date: 20061013
  Serious: Yes (Life-Threatening)
  Sender: FDA-Public Use
  Company Number: 427138

PATIENT
  Age: 69 Year
  Sex: Female
  Weight: 67.5 kg

DRUGS (2)
  1. LARIAM [Suspect]
     Indication: MALARIA PROPHYLAXIS
     Dosage: 1 PER WEEK ORAL
     Route: 048
     Dates: start: 20050929, end: 20051130
  2. ANTIDEPRESSANT NOS (ANTIDEPRESSANT NOS) [Concomitant]

REACTIONS (2)
  - DEPRESSION [None]
  - SUICIDAL IDEATION [None]
